FAERS Safety Report 8195766-1 (Version None)
Quarter: 2012Q1

REPORT INFORMATION
  Report Type: 
  Country: None (occurrence: None)
  Receive Date: 20120308
  Receipt Date: 20120308
  Transmission Date: 20120608
  Serious: Yes (Other)
  Sender: FDA-Public Use
  Company Number: US-PFIZER INC-2012018523

PATIENT
  Sex: Male

DRUGS (3)
  1. LOVAZA [Suspect]
     Dosage: UNK
  2. CRESTOR [Suspect]
     Dosage: UNK
  3. LIPITOR [Suspect]
     Dosage: UNK

REACTIONS (4)
  - CARDIAC ABLATION [None]
  - ARTHRALGIA [None]
  - MYALGIA [None]
  - GAIT DISTURBANCE [None]
